FAERS Safety Report 17194771 (Version 3)
Quarter: 2020Q1

REPORT INFORMATION
  Report Type: Report from Study
  Country: US (occurrence: US)
  Receive Date: 20191224
  Receipt Date: 20200210
  Transmission Date: 20200409
  Serious: Yes (Hospitalization, Other)
  Sender: FDA-Public Use
  Company Number: US-GILEAD-2019-0444181

PATIENT
  Age: 43 Year
  Sex: Female

DRUGS (2)
  1. AMBRISENTAN [Suspect]
     Active Substance: AMBRISENTAN
     Indication: PRODUCT USED FOR UNKNOWN INDICATION
     Dosage: 10 MG, QD
     Route: 048
     Dates: start: 20170907
  2. ORENITRAM [Concomitant]
     Active Substance: TREPROSTINIL

REACTIONS (8)
  - Syncope [Recovered/Resolved]
  - Syncope [Unknown]
  - Hypersensitivity [Not Recovered/Not Resolved]
  - Loss of consciousness [Unknown]
  - Hypotension [Unknown]
  - Dehydration [Unknown]
  - Dizziness [Unknown]
  - Rhinorrhoea [Not Recovered/Not Resolved]

NARRATIVE: CASE EVENT DATE: 201912
